FAERS Safety Report 6197217-5 (Version None)
Quarter: 2009Q2

REPORT INFORMATION
  Report Type: 
  Country: None (occurrence: None)
  Receive Date: 20090521
  Receipt Date: 20070502
  Transmission Date: 20091009
  Serious: Yes (Hospitalization)
  Sender: FDA-Public Use
  Company Number: US-ASTRAZENECA-2006UW22584

PATIENT
  Age: 16731 Day
  Sex: Male
  Weight: 111.1 kg

DRUGS (17)
  1. SEROQUEL [Suspect]
     Indication: DEPRESSION
     Dosage: 25-200 MG
     Route: 048
     Dates: start: 20030207
  2. SEROQUEL [Suspect]
     Dosage: 25 MG TO 200 MG
     Route: 048
     Dates: start: 20030101, end: 20050101
  3. RISPERDAL [Concomitant]
     Route: 065
     Dates: start: 20030101, end: 20060101
  4. OXYCODONE HCL [Concomitant]
     Route: 048
  5. CEFTRIAXONE [Concomitant]
     Route: 065
  6. GLUCOPHAGE [Concomitant]
     Route: 065
  7. GLIPIZIDE [Concomitant]
     Dosage: 2.5-10 MG
     Route: 048
  8. ATENOLOL [Concomitant]
     Route: 048
  9. LISINOPRIL [Concomitant]
     Dosage: 20-25 MG
     Route: 048
  10. CARAFATE [Concomitant]
     Route: 065
  11. OMACOR [Concomitant]
     Route: 048
  12. WELCHOL [Concomitant]
     Route: 048
  13. HYDROCHLOROTHIAZIDE [Concomitant]
     Route: 065
  14. NEXIUM [Concomitant]
     Route: 065
  15. GLYBURIDE [Concomitant]
     Route: 065
  16. FLEXERIL [Concomitant]
     Route: 048
  17. BYETTA [Concomitant]
     Route: 065

REACTIONS (17)
  - DIABETES MELLITUS [None]
  - DYSPHAGIA [None]
  - EXOSTOSIS [None]
  - FUNGAL INFECTION [None]
  - GASTRIC POLYPS [None]
  - GASTRITIS [None]
  - GASTROOESOPHAGEAL REFLUX DISEASE [None]
  - HAEMATURIA [None]
  - HYPERLIPIDAEMIA [None]
  - HYPERTENSION [None]
  - IMPAIRED GASTRIC EMPTYING [None]
  - NAIL AVULSION [None]
  - OBESITY [None]
  - OESOPHAGEAL STENOSIS [None]
  - PAIN IN EXTREMITY [None]
  - RENAL DISORDER [None]
  - URINARY TRACT INFECTION [None]
